FAERS Safety Report 23036459 (Version 2)
Quarter: 2024Q1

REPORT INFORMATION
  Report Type: Spontaneous
  Country: US (occurrence: US)
  Receive Date: 20231006
  Receipt Date: 20240206
  Transmission Date: 20240410
  Serious: No
  Sender: FDA-Public Use
  Company Number: US-BRISTOL-MYERS SQUIBB COMPANY-2023-141659

PATIENT
  Age: 79 Year
  Sex: Female

DRUGS (1)
  1. INREBIC [Suspect]
     Active Substance: FEDRATINIB HYDROCHLORIDE
     Indication: Myelofibrosis
     Dosage: FREQ-TAKE 1 CAPSULE BY MOUTH THREE TIMES A DAY
     Route: 048

REACTIONS (2)
  - Blood iron decreased [Unknown]
  - Off label use [Unknown]
